FAERS Safety Report 12845381 (Version 1)
Quarter: 2016Q4

REPORT INFORMATION
  Report Type: Spontaneous
  Country: US (occurrence: US)
  Receive Date: 20161013
  Receipt Date: 20161013
  Transmission Date: 20170207
  Serious: No
  Sender: FDA-Public Use
  Company Number: US-JAZZ-2016-US-013456

PATIENT
  Sex: Female

DRUGS (19)
  1. XYREM [Suspect]
     Active Substance: SODIUM OXYBATE
     Indication: NARCOLEPSY
     Dosage: 2.25 G, BID
     Route: 048
     Dates: start: 201604, end: 201604
  2. EXEMESTANE. [Concomitant]
     Active Substance: EXEMESTANE
  3. NIZORAL [Concomitant]
     Active Substance: KETOCONAZOLE
  4. XYREM [Suspect]
     Active Substance: SODIUM OXYBATE
     Dosage: UNKNOWN DOSE
     Route: 048
     Dates: start: 2016
  5. BACTRIM [Concomitant]
     Active Substance: SULFAMETHOXAZOLE\TRIMETHOPRIM
  6. PRAVACHOL [Concomitant]
     Active Substance: PRAVASTATIN SODIUM
  7. RELPAX [Concomitant]
     Active Substance: ELETRIPTAN HYDROBROMIDE
  8. XYREM [Suspect]
     Active Substance: SODIUM OXYBATE
     Dosage: DOSE ADJUSTMENTS
     Route: 048
     Dates: start: 201604, end: 2016
  9. DEPAKOTE [Concomitant]
     Active Substance: DIVALPROEX SODIUM
  10. PARAFON FORTE DSC [Concomitant]
     Active Substance: CHLORZOXAZONE
  11. PROAIR HFA [Concomitant]
     Active Substance: ALBUTEROL SULFATE
  12. ZANTAC [Concomitant]
     Active Substance: RANITIDINE HYDROCHLORIDE
  13. ZOFRAN [Concomitant]
     Active Substance: ONDANSETRON HYDROCHLORIDE
  14. BOTOX [Concomitant]
     Active Substance: ONABOTULINUMTOXINA
  15. FETZIMA [Concomitant]
     Active Substance: LEVOMILNACIPRAN HYDROCHLORIDE
  16. LEVOXYL [Concomitant]
     Active Substance: LEVOTHYROXINE SODIUM
  17. XANAX [Concomitant]
     Active Substance: ALPRAZOLAM
  18. FLUDROCORTISONE [Concomitant]
     Active Substance: FLUDROCORTISONE
  19. TEMOVATE [Concomitant]
     Active Substance: CLOBETASOL PROPIONATE

REACTIONS (4)
  - Nausea [Unknown]
  - Nervousness [Unknown]
  - Vomiting [Unknown]
  - Headache [Not Recovered/Not Resolved]

NARRATIVE: CASE EVENT DATE: 2016
